FAERS Safety Report 4385790-9 (Version None)
Quarter: 2004Q2

REPORT INFORMATION
  Report Type: 
  Country: None (occurrence: None)
  Receive Date: 20040623
  Receipt Date: 20040611
  Transmission Date: 20050107
  Serious: Yes (Other)
  Sender: FDA-Public Use
  Company Number: HQWYE445214JUN04

PATIENT
  Age: 25 Year
  Sex: Female

DRUGS (1)
  1. ADVIL [Suspect]
     Dosage: 3600 MG UP TO 8 TABLETS (600MG) A DAY

REACTIONS (2)
  - PANCREATITIS ACUTE [None]
  - PRESCRIBED OVERDOSE [None]
